FAERS Safety Report 24606518 (Version 2)
Quarter: 2024Q4

REPORT INFORMATION
  Report Type: Spontaneous
  Country: US (occurrence: US)
  Receive Date: 20241112
  Receipt Date: 20241126
  Transmission Date: 20250115
  Serious: Yes (Hospitalization, Other)
  Sender: TEVA
  Company Number: US-TEVA-VS-3262624

PATIENT
  Age: 36 Year
  Sex: Male

DRUGS (2)
  1. PREDNISONE [Suspect]
     Active Substance: PREDNISONE
     Indication: Back pain
     Route: 065
  2. METHYLPREDNISOLONE [Suspect]
     Active Substance: METHYLPREDNISOLONE
     Indication: Back pain
     Route: 065

REACTIONS (8)
  - Pathological fracture [Unknown]
  - Central obesity [Unknown]
  - Hyperglycaemia [Unknown]
  - Steroid dependence [Unknown]
  - Steroid withdrawal syndrome [Unknown]
  - Cushingoid [Unknown]
  - Osteonecrosis [Unknown]
  - Intentional product misuse [Unknown]
